FAERS Safety Report 5964229-3 (Version None)
Quarter: 2008Q4

REPORT INFORMATION
  Report Type: 
  Country: None (occurrence: None)
  Receive Date: 20081119
  Receipt Date: 20081010
  Transmission Date: 20090506
  Serious: No
  Sender: FDA-Public Use
  Company Number: WAES 0810USA01977

PATIENT
  Age: 97 Year
  Sex: Female

DRUGS (10)
  1. JANUVIA [Suspect]
     Indication: DIABETES MELLITUS
     Dosage: 25MG/DAILY/PO
     Route: 048
     Dates: start: 20081004
  2. COREG [Concomitant]
  3. ESTER-C [Concomitant]
  4. LASIX [Concomitant]
  5. LIPITOR [Concomitant]
  6. PROTONIX [Concomitant]
  7. SINGULAIR [Concomitant]
  8. ASPIRIN [Concomitant]
  9. VITAMIN B COMPLEX CAP [Concomitant]
  10. VITAMIN D [Concomitant]

REACTIONS (2)
  - OEDEMA [None]
  - PITTING OEDEMA [None]
